FAERS Safety Report 10041084 (Version 1)
Quarter: 2014Q1

REPORT INFORMATION
  Report Type: Spontaneous
  Country: FR (occurrence: FR)
  Receive Date: 20140327
  Receipt Date: 20140327
  Transmission Date: 20141002
  Serious: Yes (Other)
  Sender: FDA-Public Use
  Company Number: FR-ASTELLAS-2014EU001667

PATIENT
  Age: 64 Year
  Sex: Female

DRUGS (4)
  1. PROGRAF [Suspect]
     Dosage: UNK
     Route: 065
  2. CELLCEPT /01275102/ [Suspect]
     Dosage: UNK
     Route: 065
  3. CORTICOSTEROIDS [Suspect]
     Dosage: UNK
     Route: 065
  4. CERTICAN [Concomitant]
     Dosage: UNK
     Route: 065

REACTIONS (6)
  - Renal impairment [Unknown]
  - Toxicity to various agents [Unknown]
  - Lymphopenia [Unknown]
  - Portal hypertension [Unknown]
  - Ascites [Unknown]
  - Thrombocytopenia [Unknown]
